FAERS Safety Report 5948469-5 (Version None)
Quarter: 2008Q4

REPORT INFORMATION
  Report Type: 
  Country: None (occurrence: None)
  Receive Date: 20081111
  Receipt Date: 20081103
  Transmission Date: 20090506
  Serious: Yes (Congenital Anomaly)
  Sender: FDA-Public Use
  Company Number: A0748065A

PATIENT
  Sex: Female

DRUGS (5)
  1. PAXIL [Suspect]
     Indication: DEPRESSION
  2. TRAZODONE HCL [Concomitant]
  3. ACYCLOVIR [Concomitant]
  4. VITAMIN TAB [Concomitant]
  5. METRONIDAZOLE [Concomitant]
     Dosage: 500MG TWICE PER DAY
     Dates: start: 20010910

REACTIONS (3)
  - CARDIAC MURMUR [None]
  - DRUG EXPOSURE DURING PREGNANCY [None]
  - HEART DISEASE CONGENITAL [None]
